FAERS Safety Report 22030794 (Version 1)
Quarter: 2023Q1

REPORT INFORMATION
  Report Type: Spontaneous
  Country: DK (occurrence: DK)
  Receive Date: 20230223
  Receipt Date: 20230223
  Transmission Date: 20230418
  Serious: Yes (Other)
  Sender: FDA-Public Use
  Company Number: None

PATIENT
  Age: 76 Year
  Sex: Female
  Weight: 62 kg

DRUGS (2)
  1. SULFASALAZINE [Suspect]
     Active Substance: SULFASALAZINE
     Indication: Rheumatoid arthritis
     Dosage: 1000 MG, 1X/DAY (CHANGED TO SULFASALAZIN HEXAL ON UNKNOWN DATE AT LEAST SINCE AUG2022)
     Route: 048
     Dates: start: 20211008
  2. SULFASALAZINE [Suspect]
     Active Substance: SULFASALAZINE
     Indication: Rheumatoid arthritis
     Dosage: 1000 MG, 1X/DAY (CHANGED FROM SALAZOPYRIN ENTABS ON AN UNKNOWN DATE AT LEAST SINCE AUG2022)
     Route: 048
     Dates: end: 20220906

REACTIONS (5)
  - Aplastic anaemia [Recovering/Resolving]
  - Fatigue [Unknown]
  - Nausea [Unknown]
  - Oral mucosal blistering [Unknown]
  - Pruritus [Unknown]

NARRATIVE: CASE EVENT DATE: 20220101
